FAERS Safety Report 15927127 (Version 2)
Quarter: 2019Q2

REPORT INFORMATION
  Report Type: Spontaneous
  Country: US (occurrence: US)
  Receive Date: 20190206
  Receipt Date: 20190412
  Transmission Date: 20190711
  Serious: Yes (Death, Other)
  Sender: FDA-Public Use
  Company Number: US-ASTRAZENECA-2018SF34855

PATIENT
  Age: 23976 Day
  Sex: Female

DRUGS (17)
  1. HALDOL [Concomitant]
     Active Substance: HALOPERIDOL
  2. PRILOSEC [Suspect]
     Active Substance: OMEPRAZOLE MAGNESIUM
     Route: 048
     Dates: start: 2017
  3. PRILOSEC [Suspect]
     Active Substance: OMEPRAZOLE MAGNESIUM
     Route: 048
     Dates: start: 20170914, end: 20171107
  4. PRILOSEC [Suspect]
     Active Substance: OMEPRAZOLE MAGNESIUM
     Dosage: GENERIC
     Route: 048
     Dates: start: 20170914, end: 20180213
  5. PROTONIX [Suspect]
     Active Substance: PANTOPRAZOLE SODIUM
     Route: 065
     Dates: start: 20171105, end: 20171111
  6. PHENYTOIN. [Concomitant]
     Active Substance: PHENYTOIN
  7. PANTOPRAZOLE [Concomitant]
     Active Substance: PANTOPRAZOLE
  8. LISINOPRIL. [Concomitant]
     Active Substance: LISINOPRIL
     Indication: HYPERTENSION
     Dates: start: 20170923
  9. SENNOSIDES. [Concomitant]
     Active Substance: SENNOSIDES
  10. LISINOPRIL. [Concomitant]
     Active Substance: LISINOPRIL
  11. HALOPERIDOL. [Concomitant]
     Active Substance: HALOPERIDOL
     Indication: SCHIZOPHRENIA
     Dates: start: 20170923
  12. PHENYTOIN SODIUM. [Concomitant]
     Active Substance: PHENYTOIN SODIUM
     Indication: SEIZURE
     Dates: start: 20170923, end: 20171103
  13. MILK OF MAGNESIA [Concomitant]
     Active Substance: MAGNESIUM HYDROXIDE
     Dates: start: 20170924, end: 20171123
  14. OXCARBAZEPINE. [Concomitant]
     Active Substance: OXCARBAZEPINE
  15. PROPOFOL. [Concomitant]
     Active Substance: PROPOFOL
  16. ASPIRIN. [Concomitant]
     Active Substance: ASPIRIN
  17. TYLENOL [Concomitant]
     Active Substance: ACETAMINOPHEN

REACTIONS (3)
  - Renal failure [Not Recovered/Not Resolved]
  - Death [Fatal]
  - Acute kidney injury [Unknown]

NARRATIVE: CASE EVENT DATE: 20170914
